FAERS Safety Report 13816094 (Version 1)
Quarter: 2017Q3

REPORT INFORMATION
  Report Type: Spontaneous
  Country: US (occurrence: US)
  Receive Date: 20170731
  Receipt Date: 20170731
  Transmission Date: 20171127
  Serious: No
  Sender: FDA-Public Use
  Company Number: US-JNJFOC-20161201852

PATIENT
  Age: 70 Year
  Sex: Female
  Weight: 68.49 kg

DRUGS (4)
  1. ZYRTEC [Suspect]
     Active Substance: CETIRIZINE HYDROCHLORIDE
     Indication: DUST ALLERGY
     Dosage: 1 TABLET A DAY, AS NEEDED, A FEW TIMES
     Route: 048
     Dates: start: 20161121, end: 20161129
  2. SYNTHROID [Concomitant]
     Active Substance: LEVOTHYROXINE SODIUM
     Indication: THYROID DISORDER
     Dosage: FOR THE PAST YEAR
     Route: 065
  3. ZYRTEC [Suspect]
     Active Substance: CETIRIZINE HYDROCHLORIDE
     Indication: SNEEZING
     Dosage: 1 TABLET A DAY, AS NEEDED, A FEW TIMES
     Route: 048
     Dates: start: 20161121, end: 20161129
  4. ZYRTEC [Suspect]
     Active Substance: CETIRIZINE HYDROCHLORIDE
     Indication: RHINORRHOEA
     Dosage: 1 TABLET A DAY, AS NEEDED, A FEW TIMES
     Route: 048
     Dates: start: 20161121, end: 20161129

REACTIONS (1)
  - Drug ineffective for unapproved indication [Unknown]
